FAERS Safety Report 14293332 (Version 8)
Quarter: 2018Q3

REPORT INFORMATION
  Report Type: Spontaneous
  Country: FR (occurrence: FR)
  Receive Date: 20171215
  Receipt Date: 20180816
  Transmission Date: 20181010
  Serious: Yes (Disabling, Other)
  Sender: FDA-Public Use
  Company Number: FR-ALLERGAN-1771193US

PATIENT
  Sex: Male

DRUGS (32)
  1. TETRAZEPAM [Suspect]
     Active Substance: TETRAZEPAM
     Indication: PRODUCT USED FOR UNKNOWN INDICATION
     Dosage: UNK
     Route: 048
     Dates: start: 20110228
  2. TETRAZEPAM [Suspect]
     Active Substance: TETRAZEPAM
     Dosage: UNK
     Route: 048
     Dates: start: 20110705
  3. LAROXYL [Suspect]
     Active Substance: AMITRIPTYLINE HYDROCHLORIDE
     Indication: NECK PAIN
     Dosage: 5?8 GTT, QD
     Route: 065
     Dates: start: 20110219, end: 201103
  4. SOLUPRED [Concomitant]
     Indication: PRODUCT USED FOR UNKNOWN INDICATION
     Dosage: UNK
     Route: 048
     Dates: start: 20110726
  5. CITALOPRAM HYDROBROMIDE ? BP [Suspect]
     Active Substance: CITALOPRAM HYDROBROMIDE
     Indication: PRODUCT USED FOR UNKNOWN INDICATION
     Dosage: UNK
     Route: 048
     Dates: start: 20110318, end: 20110518
  6. RIVOTRIL [Suspect]
     Active Substance: CLONAZEPAM
     Dosage: 5?8 GTT, QD
     Route: 065
     Dates: start: 20110219, end: 20110302
  7. NEBIVOLOL HCL ? BP [Suspect]
     Active Substance: NEBIVOLOL
     Dosage: 2 DF, QD
     Route: 048
     Dates: start: 20110510, end: 201207
  8. ATARAX [Suspect]
     Active Substance: HYDROXYZINE HYDROCHLORIDE
     Indication: PRODUCT USED FOR UNKNOWN INDICATION
     Dosage: UNK
     Route: 048
     Dates: start: 20120131, end: 201207
  9. STRESAM [Concomitant]
     Active Substance: ETIFOXINE
     Indication: PRODUCT USED FOR UNKNOWN INDICATION
     Dosage: UNK
     Route: 048
     Dates: start: 20120327
  10. TANGANIL [Concomitant]
     Active Substance: ACETYLLEUCINE
     Indication: PRODUCT USED FOR UNKNOWN INDICATION
     Dosage: 3 DF, QD
     Route: 048
     Dates: start: 20110303
  11. COVATINE [Concomitant]
     Active Substance: CAPTODIAME HYDROCHLORIDE
     Indication: PRODUCT USED FOR UNKNOWN INDICATION
     Dosage: UNK
     Route: 048
     Dates: start: 20120620, end: 201207
  12. THIOCOLCHICOSIDE [Concomitant]
     Active Substance: THIOCOLCHICOSIDE
     Indication: PRODUCT USED FOR UNKNOWN INDICATION
     Dosage: 3 DF, UNK
     Route: 048
     Dates: start: 20110201
  13. THIOCOLCHICOSIDE [Concomitant]
     Active Substance: THIOCOLCHICOSIDE
     Dosage: 1 DF, Q8HR
     Route: 048
     Dates: start: 20101210
  14. MILNACIPRAN ? BP [Suspect]
     Active Substance: MILNACIPRAN
     Indication: PANIC ATTACK
     Dosage: 2 DF, QD
     Route: 048
     Dates: start: 20110322
  15. NEBIVOLOL HCL ? BP [Suspect]
     Active Substance: NEBIVOLOL
     Indication: CARDIAC DISORDER
     Dosage: 2 DF, QD
     Route: 048
     Dates: start: 20110718, end: 201207
  16. DI?ANTALVIC [Suspect]
     Active Substance: ACETAMINOPHEN\PROPOXYPHENE HYDROCHLORIDE
     Indication: PAIN
     Dosage: 2 DF, Q6HR
     Route: 048
     Dates: start: 20100606
  17. THIOCOLCHICOSIDE [Concomitant]
     Active Substance: THIOCOLCHICOSIDE
     Dosage: 1 DF, Q8HR (TID)
     Route: 048
     Dates: start: 20101213
  18. RIVOTRIL [Suspect]
     Active Substance: CLONAZEPAM
     Indication: NECK PAIN
     Dosage: UNK
     Route: 065
     Dates: start: 20110718, end: 201110
  19. RIVOTRIL [Suspect]
     Active Substance: CLONAZEPAM
     Dosage: UNK
     Route: 065
     Dates: start: 20110510
  20. NUREFLEX [Concomitant]
     Active Substance: IBUPROFEN
     Indication: PRODUCT USED FOR UNKNOWN INDICATION
     Dosage: UNK
     Route: 048
     Dates: start: 20101213
  21. DOLIPRANE [Concomitant]
     Active Substance: ACETAMINOPHEN
     Dosage: 1 DF, TID
     Route: 048
     Dates: start: 20101213
  22. RIVOTRIL [Suspect]
     Active Substance: CLONAZEPAM
     Dosage: 15 DF, QD
     Route: 065
     Dates: start: 20110303, end: 20110327
  23. VALIUM [Concomitant]
     Active Substance: DIAZEPAM
     Indication: PRODUCT USED FOR UNKNOWN INDICATION
     Dosage: 1 DF, SINGLE, 1 DF IN TOTAL
     Route: 051
     Dates: start: 20101115, end: 20101115
  24. NEBIVOLOL HCL ? BP [Suspect]
     Active Substance: NEBIVOLOL
     Dosage: 1 DF, QD
     Route: 048
     Dates: start: 2011, end: 2011
  25. PAROXETINE. [Suspect]
     Active Substance: PAROXETINE
     Indication: PRODUCT USED FOR UNKNOWN INDICATION
     Dosage: UNK
     Route: 048
     Dates: start: 20110201
  26. TETRAZEPAM [Suspect]
     Active Substance: TETRAZEPAM
     Dosage: UNK
     Route: 048
     Dates: start: 20110726
  27. THEODRENALINE HYDROCHLORIDE [Concomitant]
     Active Substance: THEODRENALINE HYDROCHLORIDE
     Indication: PRODUCT USED FOR UNKNOWN INDICATION
     Dosage: 2 DF, UNK
     Route: 048
     Dates: start: 20101127
  28. DOLIPRANE [Concomitant]
     Active Substance: ACETAMINOPHEN
     Indication: PRODUCT USED FOR UNKNOWN INDICATION
     Dosage: 3 DF, TID
     Route: 048
     Dates: start: 20110328
  29. DOLIPRANE [Concomitant]
     Active Substance: ACETAMINOPHEN
     Dosage: 3 DF, TID
     Route: 048
     Dates: start: 20110201
  30. RIVOTRIL [Suspect]
     Active Substance: CLONAZEPAM
     Dosage: 5?8 GTT, QD
     Dates: start: 20110328
  31. UVEDOSE [Concomitant]
     Active Substance: CHOLECALCIFEROL
     Indication: PRODUCT USED FOR UNKNOWN INDICATION
     Dosage: 1 DF, Q2WEEKS (1DG, QOW)
     Route: 065
     Dates: start: 20110219
  32. THIOCOLCHICOSIDE [Concomitant]
     Active Substance: THIOCOLCHICOSIDE
     Dosage: 1 DF, Q8HR
     Route: 048
     Dates: start: 20100606

REACTIONS (23)
  - Agoraphobia [Recovered/Resolved]
  - Malaise [Recovered/Resolved]
  - Anxiety [Recovered/Resolved]
  - Panic attack [Recovered/Resolved]
  - Off label use [Unknown]
  - Tachycardia [Recovered/Resolved]
  - Dyspnoea [Unknown]
  - Adverse event [Unknown]
  - Pain in extremity [Unknown]
  - Hallucination, auditory [Recovered/Resolved]
  - Personal relationship issue [Recovered/Resolved]
  - Musculoskeletal pain [Unknown]
  - Intervertebral disc disorder [Unknown]
  - Hypoacusis [Recovered/Resolved]
  - Suicidal ideation [Recovered/Resolved]
  - Asthenia [Unknown]
  - Neurosis [Recovered/Resolved]
  - Visual impairment [Recovered/Resolved]
  - Psychotic disorder [Recovered/Resolved]
  - Drug intolerance [Unknown]
  - Hypertonia [Unknown]
  - Memory impairment [Recovered/Resolved]
  - Tinnitus [Recovered/Resolved]

NARRATIVE: CASE EVENT DATE: 20110318
